FAERS Safety Report 15239123 (Version 2)
Quarter: 2018Q3

REPORT INFORMATION
  Report Type: Spontaneous
  Country: FR (occurrence: FR)
  Receive Date: 20180803
  Receipt Date: 20180808
  Transmission Date: 20181010
  Serious: Yes (Hospitalization)
  Sender: FDA-Public Use
  Company Number: FR-ANIPHARMA-2018-FR-000112

PATIENT
  Age: 90 Year
  Sex: Female

DRUGS (7)
  1. ABILIFY [Suspect]
     Active Substance: ARIPIPRAZOLE
     Dosage: 10MG DAILY
     Route: 048
     Dates: end: 20180703
  2. NO MATCH [Concomitant]
     Active Substance: UNSPECIFIED INGREDIENT
     Route: 065
  3. NORSET [Suspect]
     Active Substance: MIRTAZAPINE
     Dosage: 15MG DAILY
     Route: 048
     Dates: end: 20180703
  4. SERESTA [Concomitant]
     Active Substance: OXAZEPAM
     Route: 065
  5. MOPRAL [Suspect]
     Active Substance: OMEPRAZOLE
     Dosage: 20MG DAILY
     Route: 048
     Dates: end: 20180703
  6. CANDESARTAN CILEXETIL. [Suspect]
     Active Substance: CANDESARTAN CILEXETIL
     Indication: HYPERTENSION
     Dosage: 8MG
     Route: 048
     Dates: end: 20180703
  7. DACRYOSERUM [Concomitant]
     Active Substance: BORIC ACID\SODIUM BORATE
     Route: 065

REACTIONS (2)
  - Altered state of consciousness [Recovering/Resolving]
  - Hyponatraemia [Recovering/Resolving]

NARRATIVE: CASE EVENT DATE: 20180708
